FAERS Safety Report 21606052 (Version 1)
Quarter: 2022Q4

REPORT INFORMATION
  Report Type: Spontaneous
  Country: US (occurrence: US)
  Receive Date: 20221117
  Receipt Date: 20221117
  Transmission Date: 20230112
  Serious: Yes (Hospitalization)
  Sender: FDA-Public Use
  Company Number: US-SANOFI-01361965

PATIENT
  Sex: Female

DRUGS (1)
  1. ICY HOT XL BACK AND LARGE AREAS [Suspect]
     Active Substance: MENTHOL
     Dosage: UNK

REACTIONS (2)
  - Blister [Recovering/Resolving]
  - Application site pain [Recovering/Resolving]
